FAERS Safety Report 8591519-0 (Version None)
Quarter: 2012Q2

REPORT INFORMATION
  Report Type: 
  Country: None (occurrence: None)
  Receive Date: 20120423
  Receipt Date: 20100726
  Transmission Date: 20120825
  Serious: Yes (Other)
  Sender: FDA-Public Use
  Company Number: PHHY2010US39254

PATIENT
  Age: 78 Year
  Sex: Male

DRUGS (3)
  1. LOPRESSOR [Suspect]
     Indication: HYPERTENSION
     Dosage: 25 MG, BID
  2. HYDROCHLOROTHIAZIDE [Concomitant]
  3. LOSARTAN POTASSIUM [Concomitant]

REACTIONS (3)
  - SYNCOPE [None]
  - BRADYCARDIA [None]
  - ORTHOSTATIC HYPOTENSION [None]
